FAERS Safety Report 9501034 (Version 1)
Quarter: 2013Q1

REPORT INFORMATION
  Report Type: Spontaneous
  Country: US (occurrence: None)
  Receive Date: 20130107
  Receipt Date: 20130107
  Transmission Date: 20140127
  Serious: No
  Sender: FDA-Public Use
  Company Number: PHEH2012US021320

PATIENT
  Age: 38 Year
  Sex: Female

DRUGS (8)
  1. GILENYA (FINGOLIMOD) CAPSULE [Suspect]
     Indication: MULTIPLE SCLEROSIS
     Route: 048
     Dates: start: 20120924
  2. BENADRYL (AMMONIUM CHLORIDE, DIPHENHYDRAMINE HYDROCHLORIDE, MENTHOL, SODIUM CITRATE) [Concomitant]
  3. TIZANIDINE (TIZANIDINE) [Concomitant]
  4. CITALOPRAM (CITALOPRAM) [Concomitant]
  5. OXCARBAZEPINE (OXCARBAZEPINE) [Concomitant]
  6. DURAGESIC (FENTANYL) [Concomitant]
  7. HYDROCODEINE (DIHYDROCODEINE PHOSPHATE) [Concomitant]
  8. GABAPENTIN (GABAPENTIN) [Concomitant]

REACTIONS (3)
  - Dyspnoea [None]
  - Back pain [None]
  - Inappropriate schedule of drug administration [None]
